FAERS Safety Report 17207074 (Version 1)
Quarter: 2019Q4

REPORT INFORMATION
  Report Type: Spontaneous
  Country: US (occurrence: US)
  Receive Date: 20191227
  Receipt Date: 20191227
  Transmission Date: 20200122
  Serious: No
  Sender: FDA-Public Use
  Company Number: US-AUROBINDO-AUR-APL-2019-005997

PATIENT

DRUGS (1)
  1. AMOXICILLIN CAPSULES USP 500 MG [Suspect]
     Active Substance: AMOXICILLIN
     Indication: TOOTH ABSCESS
     Dosage: UNK
     Route: 065
     Dates: start: 20190115

REACTIONS (4)
  - Wrong technique in product usage process [Unknown]
  - Product use complaint [Not Recovered/Not Resolved]
  - Product physical issue [Unknown]
  - Intentional overdose [Unknown]
